FAERS Safety Report 25330711 (Version 1)
Quarter: 2025Q2

REPORT INFORMATION
  Report Type: Spontaneous
  Country: US (occurrence: US)
  Receive Date: 20250519
  Receipt Date: 20250519
  Transmission Date: 20250716
  Serious: Yes (Other)
  Sender: BAYER HEALTHCARE PHARMACEUTICALS INC.
  Company Number: US-BAYER-2025A062460

PATIENT
  Age: 78 Year
  Sex: Male

DRUGS (2)
  1. KERENDIA [Suspect]
     Active Substance: FINERENONE
  2. KERENDIA [Suspect]
     Active Substance: FINERENONE
     Dosage: 20 MG, QD

REACTIONS (4)
  - Glomerular filtration rate decreased [None]
  - Blood potassium increased [None]
  - Urine albumin/creatinine ratio increased [None]
  - Blood creatinine increased [None]

NARRATIVE: CASE EVENT DATE: 20250119
